FAERS Safety Report 26127806 (Version 2)
Quarter: 2025Q4

REPORT INFORMATION
  Report Type: Other
  Country: GB (occurrence: GB)
  Receive Date: 20251206
  Receipt Date: 20251225
  Transmission Date: 20260117
  Serious: Yes (Congenital Anomaly, Other)
  Sender: GLENMARK
  Company Number: None

PATIENT

DRUGS (18)
  1. OMEPRAZOLE [Suspect]
     Active Substance: OMEPRAZOLE
     Indication: Product used for unknown indication
     Dosage: 40 MILLIGRAM, QD (40MG DAILY  )
     Route: 064
     Dates: start: 20240731
  2. NITROFURANTOIN [Suspect]
     Active Substance: NITROFURANTOIN
     Indication: Product used for unknown indication
     Dosage: UNK (IN 1ST TRIMESTER ONLY)
     Route: 064
  3. BECLOMETHASONE DIPROPIONATE [Suspect]
     Active Substance: BECLOMETHASONE DIPROPIONATE
     Indication: Asthma prophylaxis
     Dosage: 200 MICROGRAM, BID (200MICROGRAMS TWICE A DAY  )
     Route: 064
     Dates: start: 20240528
  4. DULOXETINE [Suspect]
     Active Substance: DULOXETINE
     Indication: Depression
     Dosage: 60 MILLIGRAM, QD
     Route: 064
     Dates: start: 20230223
  5. MIRTAZAPINE [Suspect]
     Active Substance: MIRTAZAPINE
     Indication: Depression
     Dosage: 45 MILLIGRAM, QD (45MG AT NIGHT  )
     Route: 064
     Dates: start: 20220615
  6. QUETIAPINE [Suspect]
     Active Substance: QUETIAPINE
     Indication: Anxiety
     Dosage: 50 MILLIGRAM, QD (50MG AT NIGHT  )
     Route: 064
     Dates: start: 20150120
  7. VITAMIN D3 [Suspect]
     Active Substance: CHOLECALCIFEROL
     Indication: Pregnancy
     Dosage: 40 INTERNATIONAL UNIT, OD (400UNITS ONCE DAILY  )
     Route: 064
     Dates: start: 20250320
  8. ENOXAPARIN SODIUM [Suspect]
     Active Substance: ENOXAPARIN SODIUM
     Indication: Pregnancy with advanced maternal age
     Dosage: 40 MILLIGRAM, QD (40MG DAILY  )
     Route: 064
     Dates: start: 20250514
  9. LACTULOSE [Suspect]
     Active Substance: LACTULOSE
     Indication: Constipation
     Dosage: 2.5 MILLILITER, QD (2.5ML TWICE A DAY  )
     Route: 064
     Dates: start: 20250409
  10. POLYETHYLENE GLYCOLS [Suspect]
     Active Substance: POLYETHYLENE GLYCOLS
     Indication: Constipation
     Dosage: UNK, QD (1-2 SACHETS DAILY)
     Route: 064
     Dates: start: 20250409
  11. DISODIUM HYDROGEN CITRATE\SODIUM LAURYL SULFATE [Suspect]
     Active Substance: DISODIUM HYDROGEN CITRATE\SODIUM LAURYL SULFATE
     Indication: Constipation
     Dosage: UNK, PRN (1 AS NEEDED RECTALLY  )
     Route: 064
     Dates: start: 20250807
  12. SENNA [Suspect]
     Active Substance: SENNOSIDES
     Indication: Constipation
     Dosage: 15 MILLIGRAM, HS (15MG AT NIGHT WHEN NEEDED  )
     Route: 064
     Dates: start: 20240731
  13. ALBUTEROL [Suspect]
     Active Substance: ALBUTEROL
     Indication: Asthma prophylaxis
     Dosage: 2 DOSAGE FORM, PRN (2 PUFFS PRN  )
     Route: 064
     Dates: start: 20240528
  14. CLOTRIMAZOLE [Suspect]
     Active Substance: CLOTRIMAZOLE
     Indication: Vulvovaginal candidiasis
     Dosage: 200 MILLIGRAM, QD (200MG AT NIGHT FOR 6 NIGHTS  )
     Route: 064
     Dates: start: 20250804, end: 20250811
  15. AMOXICILLIN [Suspect]
     Active Substance: AMOXICILLIN
     Indication: Upper respiratory tract infection
     Dosage: UNK, TID, 1 THREE TIMES A DAY FOR 1 WEEK(GENERICS UK AMOXICILLIN  1 THREE TIMES A DAY FOR 1 WEEK  )
     Route: 064
     Dates: start: 20250925, end: 20251002
  16. FOLIC ACID [Suspect]
     Active Substance: FOLIC ACID
     Indication: Vitamin supplementation
     Dosage: 400 MICROGRAM
     Route: 064
  17. ACETAMINOPHEN [Suspect]
     Active Substance: ACETAMINOPHEN
     Indication: Product used for unknown indication
     Dosage: UNK, IN 1ST TRIMESTER ONLY
     Route: 064
  18. AMOXICILLIN [Concomitant]
     Active Substance: AMOXICILLIN
     Indication: Product used for unknown indication
     Dosage: UNK (3RD TRIMESTER ONLY)
     Route: 064

REACTIONS (2)
  - Cleft palate [Not Recovered/Not Resolved]
  - Foetal exposure during pregnancy [Unknown]

NARRATIVE: CASE EVENT DATE: 20251101
